FAERS Safety Report 9206042 (Version 1)
Quarter: 2013Q2

REPORT INFORMATION
  Report Type: Spontaneous
  Country: US (occurrence: None)
  Receive Date: 20130401
  Receipt Date: 20130401
  Transmission Date: 20140414
  Serious: Yes (Other)
  Sender: FDA-Public Use
  Company Number: FK201300923

PATIENT
  Age: 64 Year
  Sex: 0

DRUGS (8)
  1. DEXAMETHASONE [Suspect]
     Indication: PLASMA CELL MYELOMA
  2. PAMIDRONATE [Suspect]
     Indication: PLASMA CELL MYELOMA
     Dates: start: 2009
  3. BENDAMUSTINE [Concomitant]
  4. CYCLOPHOSPHAMIDE [Concomitant]
  5. IMATINIB [Concomitant]
  6. PREDNISONE [Concomitant]
  7. ANTIHISTAMINES [Concomitant]
  8. BORTEZOMIB [Concomitant]

REACTIONS (3)
  - Osteonecrosis of jaw [None]
  - Plasma cell myeloma [None]
  - Drug intolerance [None]
